FAERS Safety Report 7089440-2 (Version None)
Quarter: 2010Q4

REPORT INFORMATION
  Report Type: 
  Country: None (occurrence: None)
  Receive Date: 20101108
  Receipt Date: 20101101
  Transmission Date: 20110411
  Serious: Yes (Other)
  Sender: FDA-Public Use
  Company Number: US-PFIZER INC-2010138991

PATIENT
  Sex: Female
  Weight: 46.259 kg

DRUGS (7)
  1. ZOLOFT [Suspect]
     Indication: DEPRESSION
     Dosage: 50 MG, UNK
     Dates: start: 20080801
  2. ZOLOFT [Suspect]
     Indication: ANXIETY
     Dosage: 100 MG, 1X/DAY
  3. VISTARIL [Suspect]
     Indication: PANIC ATTACK
     Dosage: 25 MG, 3X/DAY
     Route: 048
     Dates: start: 20100801, end: 20101019
  4. VISTARIL [Suspect]
     Indication: ANXIETY
  5. VISTARIL [Suspect]
     Indication: ADJUVANT THERAPY
  6. KLONOPIN [Concomitant]
     Indication: PANIC ATTACK
     Dosage: 1 MG, 3X/DAY
  7. KLONOPIN [Concomitant]
     Indication: ANXIETY

REACTIONS (3)
  - ANXIETY [None]
  - MEMORY IMPAIRMENT [None]
  - PANIC ATTACK [None]
